FAERS Safety Report 15060196 (Version 2)
Quarter: 2018Q3

REPORT INFORMATION
  Report Type: Spontaneous
  Country: US (occurrence: US)
  Receive Date: 20180625
  Receipt Date: 20180702
  Transmission Date: 20181010
  Serious: No
  Sender: FDA-Public Use
  Company Number: US-BAYER-2018-114842

PATIENT

DRUGS (2)
  1. CLARITIN?D 12 HOUR [Suspect]
     Active Substance: LORATADINE\PSEUDOEPHEDRINE SULFATE
     Dosage: UNK
  2. BENADRYL [Concomitant]
     Active Substance: DIPHENHYDRAMINE HYDROCHLORIDE

REACTIONS (6)
  - Drug effect variable [Unknown]
  - Labelled drug-disease interaction medication error [Unknown]
  - Increased upper airway secretion [Unknown]
  - Dysphagia [Unknown]
  - Incorrect drug administration duration [None]
  - Incorrect dosage administered [Unknown]
